FAERS Safety Report 6708188-4 (Version None)
Quarter: 2010Q2

REPORT INFORMATION
  Report Type: 
  Country: None (occurrence: None)
  Receive Date: 20100503
  Receipt Date: 20090311
  Transmission Date: 20101027
  Serious: No
  Sender: FDA-Public Use
  Company Number: US-ASTRAZENECA-2009UW02884

PATIENT
  Sex: Male

DRUGS (15)
  1. NEXIUM [Suspect]
     Route: 048
  2. UDEPRION [Concomitant]
  3. LISINOPRIL [Concomitant]
  4. MELOXICAM [Concomitant]
  5. PLAVIX [Concomitant]
  6. TEMAZEPAM [Concomitant]
  7. FLOMAX [Concomitant]
  8. FINASTERIDE [Concomitant]
  9. PRAVASTATIN [Concomitant]
  10. SPIRIVA [Concomitant]
  11. COMBIGAN [Concomitant]
  12. XALATAN [Concomitant]
  13. MULTI-VITAMIN [Concomitant]
  14. MULTIVITAMIN [Concomitant]
  15. NIACIN [Concomitant]

REACTIONS (2)
  - AGEUSIA [None]
  - ANOSMIA [None]
